FAERS Safety Report 19728384 (Version 2)
Quarter: 2021Q3

REPORT INFORMATION
  Report Type: Spontaneous
  Country: IT (occurrence: IT)
  Receive Date: 20210820
  Receipt Date: 20210820
  Transmission Date: 20211014
  Serious: Yes (Hospitalization, Other)
  Sender: FDA-Public Use
  Company Number: ALC2021IT004662

PATIENT

DRUGS (1)
  1. FLUORESCEIN SODIUM 10% [Suspect]
     Active Substance: FLUORESCEIN SODIUM
     Indication: OPTICAL COHERENCE TOMOGRAPHY
     Dosage: 10 MG/KG
     Route: 040
     Dates: start: 20210728, end: 20210728

REACTIONS (1)
  - Anaphylactic shock [Not Recovered/Not Resolved]

NARRATIVE: CASE EVENT DATE: 20210728
